FAERS Safety Report 17719476 (Version 3)
Quarter: 2020Q2

REPORT INFORMATION
  Report Type: Report from Study
  Country: None (occurrence: DE)
  Receive Date: 20200428
  Receipt Date: 20200609
  Transmission Date: 20200714
  Serious: Yes (Hospitalization, Other)
  Sender: FDA-Public Use
  Company Number: DE-ABBVIE-20K-062-3382364-00

PATIENT
  Age: 68 Year
  Sex: Male

DRUGS (16)
  1. DUODOPA [Suspect]
     Active Substance: CARBIDOPA\LEVODOPA
     Indication: PARKINSON^S DISEASE
     Dosage: MD 7.5ML; CRD 2 ML/H; ED 0.5 ML/20 MG/ML + 5 MG/ML GEL 1 SACHET/DAY
     Route: 050
     Dates: start: 20170330
  2. OPIPRAMOL [Concomitant]
     Active Substance: OPIPRAMOL
     Indication: PRODUCT USED FOR UNKNOWN INDICATION
  3. OXAZEPAM. [Concomitant]
     Active Substance: OXAZEPAM
     Indication: PRODUCT USED FOR UNKNOWN INDICATION
  4. MOVICOL [Concomitant]
     Active Substance: POLYETHYLENE GLYCOL 3350\POTASSIUM CHLORIDE\SODIUM BICARBONATE\SODIUM CHLORIDE
     Indication: PRODUCT USED FOR UNKNOWN INDICATION
  5. PIPAMPERON [Concomitant]
     Active Substance: PIPAMPERONE HYDROCHLORIDE
     Indication: PRODUCT USED FOR UNKNOWN INDICATION
  6. ABSTRAL [Concomitant]
     Active Substance: FENTANYL CITRATE
     Indication: PRODUCT USED FOR UNKNOWN INDICATION
  7. DICLOFENAC [Concomitant]
     Active Substance: DICLOFENAC
     Indication: PRODUCT USED FOR UNKNOWN INDICATION
  8. PANTOPRAZOL [Concomitant]
     Active Substance: PANTOPRAZOLE SODIUM
     Indication: PRODUCT USED FOR UNKNOWN INDICATION
  9. VITAMIN B12 [Concomitant]
     Active Substance: CYANOCOBALAMIN
     Indication: PRODUCT USED FOR UNKNOWN INDICATION
  10. LYRICA [Concomitant]
     Active Substance: PREGABALIN
     Indication: PRODUCT USED FOR UNKNOWN INDICATION
  11. LYRICA [Concomitant]
     Active Substance: PREGABALIN
  12. CIPRALEX [Concomitant]
     Active Substance: ESCITALOPRAM OXALATE
     Indication: PRODUCT USED FOR UNKNOWN INDICATION
  13. ESCITALOPRAM [Concomitant]
     Active Substance: ESCITALOPRAM OXALATE
     Indication: PRODUCT USED FOR UNKNOWN INDICATION
     Dosage: 5 DROPS
  14. NOVAMIN [Concomitant]
     Indication: PRODUCT USED FOR UNKNOWN INDICATION
     Dosage: DROPS
  15. FENTANYL. [Concomitant]
     Active Substance: FENTANYL
     Indication: PRODUCT USED FOR UNKNOWN INDICATION
     Dosage: 0.075 MG/H
  16. PANTOZOL [Concomitant]
     Active Substance: PANTOPRAZOLE SODIUM
     Indication: PRODUCT USED FOR UNKNOWN INDICATION

REACTIONS (37)
  - Cholecystectomy [Unknown]
  - PO2 decreased [Unknown]
  - Oxygen saturation increased [Recovered/Resolved]
  - Oxygen saturation decreased [Unknown]
  - Weight decreased [Unknown]
  - Blood urea increased [Unknown]
  - Embedded device [Recovered/Resolved]
  - Peritonitis [Unknown]
  - Device occlusion [Recovered/Resolved]
  - Pneumonia aspiration [Unknown]
  - Mean cell volume increased [Recovered/Resolved]
  - Blood bicarbonate increased [Unknown]
  - Carboxyhaemoglobin increased [Unknown]
  - Blood potassium decreased [Recovered/Resolved]
  - Blood glucose decreased [Recovered/Resolved]
  - Haemoglobin decreased [Unknown]
  - Blood creatinine decreased [Unknown]
  - C-reactive protein increased [Recovered/Resolved]
  - PCO2 decreased [Recovered/Resolved]
  - Blood pH increased [Recovered/Resolved]
  - Calcium ionised decreased [Recovered/Resolved]
  - Blood bilirubin increased [Recovered/Resolved]
  - Akinesia [Unknown]
  - Blood glucose increased [Recovered/Resolved]
  - Osteoarthritis [Unknown]
  - Base excess increased [Unknown]
  - Blood bicarbonate increased [Unknown]
  - Post procedural complication [Unknown]
  - Haematocrit decreased [Recovered/Resolved]
  - Red cell distribution width increased [Unknown]
  - PO2 increased [Recovered/Resolved]
  - PCO2 increased [Unknown]
  - Device occlusion [Recovered/Resolved]
  - Red blood cell count decreased [Unknown]
  - White blood cell count decreased [Unknown]
  - Prothrombin time prolonged [Unknown]
  - Cholecystitis infective [Unknown]

NARRATIVE: CASE EVENT DATE: 201704
